FAERS Safety Report 7916067-X (Version None)
Quarter: 2011Q4

REPORT INFORMATION
  Report Type: 
  Country: None (occurrence: None)
  Receive Date: 20111115
  Receipt Date: 20090729
  Transmission Date: 20120403
  Serious: Yes (Other)
  Sender: FDA-Public Use
  Company Number: PHHY2009TW60984

PATIENT
  Sex: Female

DRUGS (2)
  1. BLOOD TRANSFUSION, AUXILIARY PRODUCTS [Concomitant]
  2. GLEEVEC [Suspect]
     Indication: GASTROINTESTINAL STROMAL TUMOUR
     Dosage: 400 MG, UNK
     Route: 048
     Dates: start: 20090318

REACTIONS (8)
  - ANAEMIA [None]
  - ORBITAL OEDEMA [None]
  - FATIGUE [None]
  - EYE DISCHARGE [None]
  - ALOPECIA [None]
  - VOMITING [None]
  - EYE PRURITUS [None]
  - TINEA PEDIS [None]
